FAERS Safety Report 9688648 (Version 1)
Quarter: 2013Q4

REPORT INFORMATION
  Report Type: Spontaneous
  Country: US (occurrence: None)
  Receive Date: 20131113
  Receipt Date: 20131113
  Transmission Date: 20140711
  Serious: Yes (Other)
  Sender: FDA-Public Use
  Company Number: A1048613A

PATIENT
  Sex: Male

DRUGS (1)
  1. CALCIUM CARBONATE [Suspect]
     Indication: PRODUCT USED FOR UNKNOWN INDICATION
     Dosage: UNK / UNK / ORAL
     Route: 048

REACTIONS (2)
  - Haematochezia [None]
  - Dizziness [None]
